FAERS Safety Report 9144237 (Version 2)
Quarter: 2013Q2

REPORT INFORMATION
  Report Type: Spontaneous
  Country: IT (occurrence: IT)
  Receive Date: 20130306
  Receipt Date: 20130408
  Transmission Date: 20140414
  Serious: Yes (Hospitalization)
  Sender: FDA-Public Use
  Company Number: IT-ROCHE-1193527

PATIENT
  Age: 37 Year
  Sex: Male

DRUGS (6)
  1. RIVOTRIL [Suspect]
     Indication: DEPRESSION
     Route: 048
  2. RIVOTRIL [Suspect]
     Dosage: OVERDOSE: DOSAGE TAKEN: 30 DF ONCE TOTAL
     Route: 048
     Dates: start: 20130218, end: 20130218
  3. LAROXYL [Suspect]
     Indication: DEPRESSION
     Route: 048
     Dates: start: 20130218, end: 20130218
  4. LAROXYL [Suspect]
     Route: 048
  5. DEPAKIN [Concomitant]
     Indication: DEPRESSION
  6. ANSIOLIN [Concomitant]
     Indication: DEPRESSION

REACTIONS (6)
  - Bradykinesia [Recovering/Resolving]
  - Hypotension [Recovering/Resolving]
  - Intentional self-injury [Recovering/Resolving]
  - Tachycardia [Recovering/Resolving]
  - Bradyphrenia [Recovering/Resolving]
  - Overdose [Unknown]
